FAERS Safety Report 5213205-7 (Version None)
Quarter: 2007Q1

REPORT INFORMATION
  Report Type: 
  Country: None (occurrence: None)
  Receive Date: 20070119
  Receipt Date: 20070112
  Transmission Date: 20070707
  Serious: Yes (Hospitalization)
  Sender: FDA-Public Use
  Company Number: FR-GLAXOSMITHKLINE-B0454516A

PATIENT
  Age: 93 Year
  Sex: Male
  Weight: 71 kg

DRUGS (7)
  1. ARIXTRA [Suspect]
     Indication: PULMONARY EMBOLISM
     Dosage: 7.5MG PER DAY
     Route: 058
     Dates: start: 20061109, end: 20061121
  2. PREVISCAN [Suspect]
     Indication: PULMONARY EMBOLISM
     Dosage: 20MG PER DAY
     Route: 048
     Dates: start: 20061115, end: 20061122
  3. PENTASA [Concomitant]
     Indication: ENTEROCOLITIS HAEMORRHAGIC
     Route: 054
     Dates: start: 20061101
  4. RENITEC [Concomitant]
     Indication: ESSENTIAL HYPERTENSION
     Dosage: 20MG PER DAY
     Route: 048
  5. TARDYFERON [Concomitant]
     Indication: ANAEMIA
     Dosage: 80MG PER DAY
     Route: 048
     Dates: start: 20061117
  6. DICYNONE [Concomitant]
     Indication: PROCEDURAL COMPLICATION
     Dosage: 250MG PER DAY
     Route: 048
     Dates: start: 20061117
  7. SOLUPRED [Concomitant]
     Indication: ANAEMIA
     Dosage: 40MG TWICE PER DAY
     Route: 048
     Dates: start: 20061117

REACTIONS (2)
  - ABDOMINAL HAEMATOMA [None]
  - ANAEMIA [None]
